FAERS Safety Report 9170766 (Version 1)
Quarter: 2013Q1

REPORT INFORMATION
  Report Type: Spontaneous
  Country: US (occurrence: US)
  Receive Date: 20130319
  Receipt Date: 20130319
  Transmission Date: 20140127
  Serious: No
  Sender: FDA-Public Use
  Company Number: US-PFIZER INC-2013086049

PATIENT
  Sex: Female

DRUGS (1)
  1. XALATAN [Suspect]
     Indication: INTRAOCULAR PRESSURE INCREASED
     Dosage: UNK
     Route: 047
     Dates: start: 201302

REACTIONS (6)
  - Product container issue [Unknown]
  - Vision blurred [Unknown]
  - Nasopharyngitis [Unknown]
  - Balance disorder [Unknown]
  - Photophobia [Unknown]
  - Off label use [Unknown]
